FAERS Safety Report 6940571-4 (Version None)
Quarter: 2010Q3

REPORT INFORMATION
  Report Type: 
  Country: None (occurrence: None)
  Receive Date: 20100825
  Receipt Date: 20100818
  Transmission Date: 20110219
  Serious: Yes (Other)
  Sender: FDA-Public Use
  Company Number: US-BAYER-201028567NA

PATIENT
  Age: 58 Year
  Sex: Female

DRUGS (1)
  1. MAGNEVIST [Suspect]
     Indication: NUCLEAR MAGNETIC RESONANCE IMAGING ABDOMINAL
     Dosage: AS USED: 20 ML  UNIT DOSE: 20 ML
     Dates: start: 20100721, end: 20100721

REACTIONS (2)
  - DYSPNOEA [None]
  - HYPERHIDROSIS [None]
